FAERS Safety Report 18437498 (Version 6)
Quarter: 2021Q3

REPORT INFORMATION
  Report Type: Report from Study
  Country: US (occurrence: US)
  Receive Date: 20201028
  Receipt Date: 20210920
  Transmission Date: 20211014
  Serious: No
  Sender: FDA-Public Use
  Company Number: NVSC2020US289496

PATIENT
  Age: 66 Year
  Sex: Female

DRUGS (4)
  1. COSENTYX [Suspect]
     Active Substance: SECUKINUMAB
     Dosage: UNK UNK, QW (ONCE A WEEK FOR 5 WEEKS AND THEN Q4W)
     Route: 058
     Dates: start: 20201013, end: 202012
  2. COSENTYX [Suspect]
     Active Substance: SECUKINUMAB
     Indication: PSORIATIC ARTHROPATHY
     Dosage: UNK UNK, QW
     Route: 058
     Dates: start: 202009
  3. COSENTYX [Suspect]
     Active Substance: SECUKINUMAB
     Dosage: UNK UNK, QMO (EVERY 4 WEEKS)
     Route: 058
  4. COSENTYX [Suspect]
     Active Substance: SECUKINUMAB
     Dosage: 300 MG, QMO(ONCE A WEEK FOR 5 WEEKS AND THEN EVERY 4 WEEKS)
     Route: 058

REACTIONS (9)
  - Skin exfoliation [Unknown]
  - Nausea [Recovering/Resolving]
  - Bursitis [Unknown]
  - Psoriasis [Not Recovered/Not Resolved]
  - Abdominal pain upper [Not Recovered/Not Resolved]
  - Arthralgia [Unknown]
  - Diarrhoea [Recovering/Resolving]
  - Eczema [Unknown]
  - Nasopharyngitis [Unknown]

NARRATIVE: CASE EVENT DATE: 20201020
